FAERS Safety Report 19078874 (Version 1)
Quarter: 2021Q1

REPORT INFORMATION
  Report Type: Spontaneous
  Country: FR (occurrence: FR)
  Receive Date: 20210331
  Receipt Date: 20210331
  Transmission Date: 20210420
  Serious: Yes (Other)
  Sender: FDA-Public Use
  Company Number: FR-INCYTE CORPORATION-2019IN013616

PATIENT

DRUGS (1)
  1. JAKAVI [Suspect]
     Active Substance: RUXOLITINIB
     Indication: MYELOFIBROSIS
     Dosage: (PATIENT STARTED DRUG AROUND JUN 2018)
     Route: 065
     Dates: start: 201806

REACTIONS (2)
  - B-cell lymphoma stage IV [Unknown]
  - Second primary malignancy [Unknown]
